FAERS Safety Report 4902579-X (Version None)
Quarter: 2006Q1

REPORT INFORMATION
  Report Type: 
  Country: None (occurrence: None)
  Receive Date: 20060202
  Receipt Date: 20060119
  Transmission Date: 20060701
  Serious: No
  Sender: FDA-Public Use
  Company Number: 33654

PATIENT

DRUGS (1)
  1. TRAVATAN [Suspect]
     Dosage: OPHT
     Route: 047

REACTIONS (1)
  - ANGLE CLOSURE GLAUCOMA [None]
